FAERS Safety Report 17077630 (Version 1)
Quarter: 2019Q4

REPORT INFORMATION
  Report Type: Spontaneous
  Country: BR (occurrence: BR)
  Receive Date: 20191126
  Receipt Date: 20191126
  Transmission Date: 20200122
  Serious: Yes (Death, Other)
  Sender: FDA-Public Use
  Company Number: BR-AMGEN-BRASP2019194687

PATIENT
  Age: 29 Year
  Sex: Female

DRUGS (3)
  1. BLINATUMOMAB [Suspect]
     Active Substance: BLINATUMOMAB
     Indication: ACUTE LYMPHOCYTIC LEUKAEMIA RECURRENT
     Dosage: 9 MICROGRAM, QD, FOR FIRST 7 DAYS
     Route: 065
  2. FILGRASTIM [Suspect]
     Active Substance: FILGRASTIM
     Indication: PRODUCT USED FOR UNKNOWN INDICATION
     Dosage: UNK
     Route: 065
  3. BLINATUMOMAB [Suspect]
     Active Substance: BLINATUMOMAB
     Dosage: 28 MICROGRAM, QD, ON DAYS 8-28
     Route: 065

REACTIONS (6)
  - Pancreatitis acute [Unknown]
  - Post procedural sepsis [Fatal]
  - Thrombotic microangiopathy [Fatal]
  - Acute lymphocytic leukaemia [Unknown]
  - Cytokine release syndrome [Unknown]
  - Transplantation complication [Fatal]
